FAERS Safety Report 4555560-7 (Version None)
Quarter: 2005Q1

REPORT INFORMATION
  Report Type: 
  Country: None (occurrence: None)
  Receive Date: 20041228
  Receipt Date: 20040329
  Transmission Date: 20050727
  Serious: Yes (Disabling, Other)
  Sender: FDA-Public Use
  Company Number: PHEH2004US03581

PATIENT
  Age: 81 Year
  Sex: Female
  Weight: 65.8 kg

DRUGS (3)
  1. AREDIA [Suspect]
     Indication: METASTASES TO BONE
     Dosage: 90 MG, QMO, INTRAVENOUS
     Route: 042
     Dates: start: 20000101, end: 20030101
  2. INSULIN [Concomitant]
  3. HYDROCHLOROTHIAZIDE [Concomitant]

REACTIONS (5)
  - ASEPTIC NECROSIS BONE [None]
  - BONE DISORDER [None]
  - INFECTION [None]
  - PAIN [None]
  - WOUND DRAINAGE [None]
